FAERS Safety Report 5745309-4 (Version None)
Quarter: 2008Q2

REPORT INFORMATION
  Report Type: 
  Country: None (occurrence: None)
  Receive Date: 20080521
  Receipt Date: 20080509
  Transmission Date: 20081010
  Serious: Yes (Other)
  Sender: FDA-Public Use
  Company Number: CH-ROCHE-563924

PATIENT
  Age: 30 Year
  Sex: Female

DRUGS (1)
  1. ROACCUTAN GEL [Suspect]
     Indication: ACNE
     Dosage: OTHER FORM REPORTED AS 'SOLS'.
     Route: 061
     Dates: start: 20070201, end: 20070223

REACTIONS (1)
  - PRE-ECLAMPSIA [None]
